FAERS Safety Report 5522077-2 (Version None)
Quarter: 2007Q4

REPORT INFORMATION
  Report Type: 
  Country: None (occurrence: None)
  Receive Date: 20071120
  Receipt Date: 20071114
  Transmission Date: 20080405
  Serious: Yes (Hospitalization)
  Sender: FDA-Public Use
  Company Number: GB-ROCHE-520489

PATIENT
  Age: 57 Year
  Sex: Male
  Weight: 116.5 kg

DRUGS (15)
  1. ORLISTAT [Suspect]
     Indication: OBESITY
     Route: 048
     Dates: start: 20070403
  2. PERINDOPRIL [Concomitant]
     Indication: HYPERTENSION
     Route: 048
  3. 1 CONCOMITANT DRUG [Concomitant]
     Indication: HYPERTENSION
     Dosage: DRUG NAME REPORTED AS BENZOFLUMETHIAZIDE. OTHER INDICATION: WATER RETENTION.
     Route: 048
  4. VALPROATE SODIUM [Concomitant]
     Dosage: DRUG: SODIUM VALPORATE.
     Route: 048
  5. QUININE [Concomitant]
     Dosage: PATIENT UNSURE ABOUT DOSING REGIMEN.
     Route: 048
  6. TRIMETHOPRIM [Concomitant]
     Dosage: DOSE REPORTED AS 300 MG NOCTE.
     Route: 048
  7. PARACETAMOL [Concomitant]
     Indication: PAIN
     Route: 048
  8. LOSEC [Concomitant]
     Indication: HIATUS HERNIA
     Route: 048
  9. GAVISCON [Concomitant]
     Indication: HIATUS HERNIA
     Route: 048
  10. CARDURA [Concomitant]
     Indication: HYPERTENSION
     Route: 048
  11. CLONAZEPAM [Concomitant]
     Route: 048
  12. SENNA [Concomitant]
     Indication: CONSTIPATION
     Route: 048
  13. DIHYDROCODEINE [Concomitant]
     Indication: PAIN
     Route: 048
  14. VENTOLIN [Concomitant]
     Indication: ASTHMA
     Route: 055
  15. 1 CONCOMITANT DRUG [Concomitant]
     Indication: ASTHMA
     Dosage: DRUG NAME REPORTED AS SEROTIDE
     Route: 055

REACTIONS (3)
  - BLOOD PRESSURE FLUCTUATION [None]
  - CEREBROVASCULAR ACCIDENT [None]
  - HYPERTENSION [None]
